FAERS Safety Report 6021945-5 (Version None)
Quarter: 2008Q4

REPORT INFORMATION
  Report Type: 
  Country: None (occurrence: None)
  Receive Date: 20081229
  Receipt Date: 20081217
  Transmission Date: 20090506
  Serious: Yes (Death, Hospitalization)
  Sender: FDA-Public Use
  Company Number: BE-ROCHE-578420

PATIENT
  Sex: Female

DRUGS (7)
  1. XELODA [Suspect]
     Indication: BREAST CANCER
     Dosage: STRENGTH 2 G/ME2, TAKEN DAILY
     Route: 048
     Dates: start: 20080118, end: 20080412
  2. MEDROL [Suspect]
     Dosage: ANOTHER INDICATION CACHEXIA, TAKEN DAILY
     Route: 048
     Dates: start: 20071116
  3. DURAGESIC-100 [Concomitant]
     Dosage: STRENGTH: 75 UG/H, TAKEN DAILY.
     Route: 062
  4. PRAZEPAM [Concomitant]
     Dosage: STRENGTH: 10 MG X 1/2
     Route: 048
  5. INNOHEP [Concomitant]
     Dosage: STRENGTH: 10000, TAKEN DAILY
     Route: 058
     Dates: end: 20080413
  6. CORUNO [Concomitant]
     Route: 048
  7. ZANTAC [Concomitant]
     Dosage: TAKEN DAILY
     Route: 048

REACTIONS (2)
  - DISEASE PROGRESSION [None]
  - HAEMOLYTIC ANAEMIA [None]
